FAERS Safety Report 7640751-9 (Version None)
Quarter: 2011Q3

REPORT INFORMATION
  Report Type: 
  Country: None (occurrence: None)
  Receive Date: 20110728
  Receipt Date: 20110715
  Transmission Date: 20111222
  Serious: Yes (Hospitalization, Other)
  Sender: FDA-Public Use
  Company Number: US-ELI_LILLY_AND_COMPANY-US201005007200

PATIENT
  Sex: Male

DRUGS (3)
  1. FORTEO [Suspect]
     Dosage: 20 UG, DAILY (1/D)
  2. FORTEO [Suspect]
     Indication: OSTEOPOROSIS
     Dosage: 20 UG, DAILY (1/D)
     Dates: start: 20100510
  3. FORTEO [Suspect]
     Dosage: 20 UG, DAILY (1/D)

REACTIONS (6)
  - DIZZINESS [None]
  - CEREBROVASCULAR ACCIDENT [None]
  - FOOT FRACTURE [None]
  - NERVOUS SYSTEM DISORDER [None]
  - BALANCE DISORDER [None]
  - MUSCLE SPASMS [None]
